FAERS Safety Report 6285207-3 (Version None)
Quarter: 2009Q3

REPORT INFORMATION
  Report Type: 
  Country: None (occurrence: None)
  Receive Date: 20090727
  Receipt Date: 20090720
  Transmission Date: 20100115
  Serious: Yes (Death, Life-Threatening, Hospitalization, Other)
  Sender: FDA-Public Use
  Company Number: PHHY2009FR30707

PATIENT
  Sex: Female

DRUGS (9)
  1. LOPRESSOR [Suspect]
     Indication: HYPERTENSION
     Dosage: 200 MG, UNK
     Route: 048
     Dates: end: 20090601
  2. TARKA [Suspect]
     Indication: HYPERTENSION
     Dosage: UNK
     Route: 048
     Dates: end: 20090601
  3. IDARAC [Suspect]
     Dosage: 200 MG, UNK
     Route: 048
     Dates: end: 20090601
  4. CYMBALTA [Concomitant]
     Dosage: 60 MG, UNK
     Route: 048
  5. TERCIAN [Concomitant]
     Dosage: 15 GTT, UNK
     Route: 048
     Dates: end: 20090601
  6. STILNOX [Concomitant]
     Dosage: 10 MG  PER DAY
     Route: 048
     Dates: end: 20090601
  7. ALLOPURINOL [Concomitant]
     Dosage: 200 MG PER DAY
     Route: 048
     Dates: end: 20090601
  8. FOSAVANCE [Concomitant]
     Dosage: 1 IN 1 WEEK
     Route: 048
  9. DOMPERIDONE [Concomitant]
     Dosage: 10 MG, UNK
     Route: 048
     Dates: end: 20090601

REACTIONS (22)
  - ABDOMINAL PAIN UPPER [None]
  - ANGIOPATHY [None]
  - ATRIOVENTRICULAR BLOCK COMPLETE [None]
  - CARDIAC PACEMAKER INSERTION [None]
  - CARDIO-RESPIRATORY ARREST [None]
  - CARDIOMEGALY [None]
  - CENTRAL VENOUS PRESSURE INCREASED [None]
  - CIRCULATORY COLLAPSE [None]
  - DIALYSIS [None]
  - GLASGOW COMA SCALE ABNORMAL [None]
  - HEART RATE DECREASED [None]
  - HYPERKALAEMIA [None]
  - HYPOTENSION [None]
  - HYPOTHERMIA [None]
  - KIDNEY SMALL [None]
  - OXYGEN SATURATION DECREASED [None]
  - PERICARDIAL DRAINAGE [None]
  - RENAL DISORDER [None]
  - RENAL FAILURE [None]
  - SHOCK [None]
  - VENTRICULAR ARRHYTHMIA [None]
  - VENTRICULAR DYSFUNCTION [None]
